FAERS Safety Report 20891813 (Version 1)
Quarter: 2022Q2

REPORT INFORMATION
  Report Type: Spontaneous
  Country: CN (occurrence: CN)
  Receive Date: 20220530
  Receipt Date: 20220530
  Transmission Date: 20220721
  Serious: Yes (Other)
  Sender: FDA-Public Use
  Company Number: CN-PFIZER INC-202200762640

PATIENT
  Age: 91 Year
  Sex: Male

DRUGS (8)
  1. CELEBREX [Suspect]
     Active Substance: CELECOXIB
     Dosage: UNK
     Dates: start: 20211210, end: 20211210
  2. NORVASC [Suspect]
     Active Substance: AMLODIPINE BESYLATE
     Dosage: UNK
     Dates: start: 20211210, end: 20211210
  3. LIPITOR [Suspect]
     Active Substance: ATORVASTATIN CALCIUM
     Dosage: UNK
     Dates: start: 20211210, end: 20211210
  4. CLOPIDOGREL BISULFATE [Suspect]
     Active Substance: CLOPIDOGREL BISULFATE
     Dosage: UNK
     Dates: start: 20211210, end: 20211210
  5. HERBALS [Suspect]
     Active Substance: HERBALS
     Dosage: UNK
     Dates: start: 20211210, end: 20211210
  6. BENZBROMARONE [Suspect]
     Active Substance: BENZBROMARONE
     Dosage: UNK
     Dates: start: 20211210, end: 20211210
  7. NICOTINIC ACID [Suspect]
     Active Substance: NIACIN
     Dosage: UNK
     Dates: start: 20211210, end: 20211210
  8. PAPAVERINE HYDROCHLORIDE [Suspect]
     Active Substance: PAPAVERINE HYDROCHLORIDE
     Dosage: UNK
     Dates: start: 20211210, end: 20211210

REACTIONS (4)
  - Pneumonia aspiration [Unknown]
  - Platelet count increased [Unknown]
  - White blood cell count increased [Unknown]
  - Vomiting [Unknown]

NARRATIVE: CASE EVENT DATE: 20211210
